FAERS Safety Report 7417197-1 (Version None)
Quarter: 2011Q2

REPORT INFORMATION
  Report Type: 
  Country: None (occurrence: None)
  Receive Date: 20110415
  Receipt Date: 20110225
  Transmission Date: 20111010
  Serious: Yes (Other)
  Sender: FDA-Public Use
  Company Number: US-BAYER-201038005NA

PATIENT
  Age: 28 Year
  Sex: Female
  Weight: 126 kg

DRUGS (5)
  1. MOTRIN [Concomitant]
     Indication: PAIN
     Dosage: 800 MG, TID
     Route: 048
     Dates: start: 20060328
  2. YASMIN [Suspect]
     Indication: CONTRACEPTION
     Dosage: UNK UNK, QD
     Route: 048
     Dates: start: 20060101
  3. MOTRIN [Concomitant]
     Indication: PYREXIA
  4. YASMIN [Suspect]
     Indication: MENSTRUATION IRREGULAR
  5. CLARITIN-D [Concomitant]
     Indication: HYPERSENSITIVITY
     Route: 048

REACTIONS (1)
  - PULMONARY EMBOLISM [None]
